FAERS Safety Report 14433139 (Version 2)
Quarter: 2018Q4

REPORT INFORMATION
  Report Type: Report from Study
  Country: US (occurrence: US)
  Receive Date: 20180124
  Receipt Date: 20181130
  Transmission Date: 20190204
  Serious: Yes (Death)
  Sender: FDA-Public Use
  Company Number: US-PFIZER INC-2018029177

PATIENT

DRUGS (5)
  1. DOXORUBICIN HCL [Suspect]
     Active Substance: DOXORUBICIN HYDROCHLORIDE
     Indication: B-CELL LYMPHOMA
     Dosage: 50 MG/M2, CYCLIC (ON DAY 1, TREATMENT CYCLES WERE REPEATED AFTER EVERY 3 WEEKS FOR A TOTAL OF 6 TO 8
     Route: 042
  2. CYCLOPHOSPHAMIDE. [Suspect]
     Active Substance: CYCLOPHOSPHAMIDE
     Indication: B-CELL LYMPHOMA
     Dosage: 750 MG/M2, CYCLIC (ON DAY 1, TREATMENT CYCLES WERE REPEATED AFTER EVERY 3 WEEKS FOR A TOTAL OF 6 TO
     Route: 042
  3. VINCRISTINE SULFATE. [Suspect]
     Active Substance: VINCRISTINE SULFATE
     Indication: B-CELL LYMPHOMA
     Dosage: 1.4 MG/M2, CYCLIC (MAXIMUM, 2.0 MG ON DAY 1, TREATMENT CYCLES WERE REPEATED AFTER EVERY 3 WEEKS FOR
     Route: 042
  4. PREDNISONE. [Suspect]
     Active Substance: PREDNISONE
     Indication: B-CELL LYMPHOMA
     Dosage: 100 MG/M2, CYCLIC (DAILY ON DAYS 1 TO 5, TREATMENT CYCLES WERE REPEATED AFTER EVERY 3 WEEKS
     Route: 048
  5. RITUXIMAB. [Suspect]
     Active Substance: RITUXIMAB
     Indication: B-CELL LYMPHOMA
     Dosage: 375 MG/M2, CYCLIC (ON DAY 0, TREATMENT CYCLES WERE REPEATED AFTER EVERY 3 WEEKS FOR A TOTAL OF 6 TO
     Route: 042

REACTIONS (2)
  - Second primary malignancy [Fatal]
  - Acute myeloid leukaemia [Fatal]
